FAERS Safety Report 10488248 (Version 5)
Quarter: 2020Q3

REPORT INFORMATION
  Report Type: Spontaneous
  Country: NL (occurrence: NL)
  Receive Date: 20141002
  Receipt Date: 20200812
  Transmission Date: 20201102
  Serious: Yes (Death, Life-Threatening, Hospitalization, Other)
  Sender: FDA-Public Use
  Company Number: PHHY2014NL124238

PATIENT
  Age: 77 Year
  Sex: Male

DRUGS (13)
  1. CLARITHROMYCIN. [Suspect]
     Active Substance: CLARITHROMYCIN
     Indication: NIGHT SWEATS
  2. METRONIDAZOLE. [Suspect]
     Active Substance: METRONIDAZOLE
     Indication: BRAIN ABSCESS
  3. CLARITHROMYCIN. [Suspect]
     Active Substance: CLARITHROMYCIN
     Indication: BRAIN ABSCESS
     Dosage: 250 MG, BID
     Route: 048
  4. METRONIDAZOLE. [Suspect]
     Active Substance: METRONIDAZOLE
     Indication: INFECTION
     Dosage: 500 MG, TID
     Route: 042
  5. CEFTRIAXON 2 G, POEDER VOOR OPLOSSING VOOR INFUSIE [Suspect]
     Active Substance: CEFTRIAXONE
     Indication: BRAIN ABSCESS
     Dosage: 2 G, BID
     Route: 042
  6. CEFTRIAXON 2 G, POEDER VOOR OPLOSSING VOOR INFUSIE [Suspect]
     Active Substance: CEFTRIAXONE
     Indication: CONFUSIONAL STATE
  7. VANCOMYCIN [Suspect]
     Active Substance: VANCOMYCIN
     Indication: BRAIN ABSCESS
     Dosage: UNK
     Route: 042
  8. VANCOMYCIN [Suspect]
     Active Substance: VANCOMYCIN
     Indication: STREPTOCOCCAL INFECTION
  9. METRONIDAZOLE. [Suspect]
     Active Substance: METRONIDAZOLE
     Indication: BACTERIAL INFECTION
  10. AMOXICILLIN. [Suspect]
     Active Substance: AMOXICILLIN
     Indication: BRAIN ABSCESS
     Dosage: 2 G, 6QD
     Route: 042
  11. PENICILLIN G HOECHST [Suspect]
     Active Substance: PENICILLIN G
     Indication: BRAIN ABSCESS
     Dosage: 12 MILLION IU, QD
     Route: 065
  12. CLARITHROMYCIN. [Suspect]
     Active Substance: CLARITHROMYCIN
     Indication: HEADACHE
  13. CLARITHROMYCIN. [Suspect]
     Active Substance: CLARITHROMYCIN
     Indication: CONFUSIONAL STATE

REACTIONS (18)
  - Dyspnoea [Fatal]
  - Acute hepatic failure [Fatal]
  - Acute kidney injury [Fatal]
  - Pruritus [Fatal]
  - Haemodynamic instability [Fatal]
  - Liver function test abnormal [Fatal]
  - Skin exfoliation [Fatal]
  - Oliguria [Fatal]
  - Renal failure [Fatal]
  - Disorientation [Fatal]
  - Concomitant disease progression [Fatal]
  - Drug reaction with eosinophilia and systemic symptoms [Fatal]
  - Respiratory failure [Fatal]
  - Jaundice [Fatal]
  - Erythema [Fatal]
  - Pyrexia [Fatal]
  - Diffuse alveolar damage [Fatal]
  - Multiple organ dysfunction syndrome [Fatal]
